FAERS Safety Report 4974384-X (Version None)
Quarter: 2006Q2

REPORT INFORMATION
  Report Type: 
  Country: None (occurrence: None)
  Receive Date: 20060410
  Receipt Date: 20060328
  Transmission Date: 20061013
  Serious: Yes (Disabling, Other)
  Sender: FDA-Public Use
  Company Number: 2005135483

PATIENT
  Age: 60 Year
  Sex: Male
  Weight: 90.7194 kg

DRUGS (10)
  1. VIAGRA [Suspect]
     Indication: ILL-DEFINED DISORDER
     Dosage: (AS NECESSARY)
     Dates: start: 20040701
  2. CONCERTA [Concomitant]
  3. RITALIN [Concomitant]
  4. LIPITOR [Concomitant]
  5. PREDNISONE TAB [Concomitant]
  6. ASPIRIN [Concomitant]
  7. CENTRUM SILVER (ASCORBIC ACID, CALCIUM, MINERALS NOS, RETINOL, TOCOPHE [Concomitant]
  8. B COMPLEX (NICOTINAMIDE, PYRIDOXINE HYDROCHLORIDE, RIBOFLAVIN, THIAMIN [Concomitant]
  9. LUTEIN (XANTHOPHYLL) [Concomitant]
  10. GINKGO BILOBA (GINKGO BILOBA) [Concomitant]

REACTIONS (33)
  - ABDOMINAL PAIN [None]
  - ALPHA 2 GLOBULIN DECREASED [None]
  - ASTHENOPIA [None]
  - BACK PAIN [None]
  - BLINDNESS UNILATERAL [None]
  - BLOOD CHOLESTEROL INCREASED [None]
  - BLOOD TRIGLYCERIDES INCREASED [None]
  - BRADYCARDIA [None]
  - CAROTID ARTERY ATHEROMA [None]
  - CATARACT NUCLEAR [None]
  - CEREBRAL ISCHAEMIA [None]
  - COUGH [None]
  - DEPRESSION [None]
  - DISEASE PROGRESSION [None]
  - ENDOTHELIAL DYSFUNCTION [None]
  - EYE HAEMORRHAGE [None]
  - EYE PAIN [None]
  - EYELID PTOSIS [None]
  - FATIGUE [None]
  - HYPERTENSION [None]
  - HYPOTHALAMO-PITUITARY DISORDERS [None]
  - IMPAIRED DRIVING ABILITY [None]
  - LOW DENSITY LIPOPROTEIN INCREASED [None]
  - NEPHROLITHIASIS [None]
  - OCULAR VASCULAR DISORDER [None]
  - OPTIC ATROPHY [None]
  - OPTIC ISCHAEMIC NEUROPATHY [None]
  - OPTIC NEURITIS [None]
  - PANIC ATTACK [None]
  - PINGUECULA [None]
  - RENAL CYST [None]
  - TENSION [None]
  - VISUAL FIELD DEFECT [None]
